FAERS Safety Report 5782796-X (Version None)
Quarter: 2008Q2

REPORT INFORMATION
  Report Type: 
  Country: None (occurrence: None)
  Receive Date: 20080624
  Receipt Date: 20080401
  Transmission Date: 20081010
  Serious: No
  Sender: FDA-Public Use
  Company Number: US-BAYER-200818898NA

PATIENT
  Age: 46 Year
  Sex: Female
  Weight: 61 kg

DRUGS (2)
  1. CLIMARA [Suspect]
     Indication: MENOPAUSE
     Route: 062
     Dates: start: 20071001
  2. SYNTHROID [Concomitant]

REACTIONS (3)
  - APHONIA [None]
  - COUGH [None]
  - RESPIRATORY TRACT INFECTION VIRAL [None]
